FAERS Safety Report 4493883-0 (Version None)
Quarter: 2004Q4

REPORT INFORMATION
  Report Type: 
  Country: None (occurrence: None)
  Receive Date: 20041105
  Receipt Date: 20041026
  Transmission Date: 20050328
  Serious: Yes (Other)
  Sender: FDA-Public Use
  Company Number: NO-JNJFOC-20041007643

PATIENT
  Age: 43 Year
  Sex: Male

DRUGS (1)
  1. REMICADE [Suspect]
     Indication: DRUG USE FOR UNKNOWN INDICATION
     Route: 042

REACTIONS (5)
  - DYSPNOEA [None]
  - FLUSHING [None]
  - INFUSION RELATED REACTION [None]
  - MALAISE [None]
  - TACHYCARDIA [None]
